FAERS Safety Report 8501668-0 (Version None)
Quarter: 2012Q3

REPORT INFORMATION
  Report Type: 
  Country: None (occurrence: None)
  Receive Date: 20120711
  Receipt Date: 20120702
  Transmission Date: 20120928
  Serious: Yes (Hospitalization)
  Sender: FDA-Public Use
  Company Number: 2007BI006537

PATIENT
  Sex: Male
  Weight: 82 kg

DRUGS (6)
  1. CIALIS [Concomitant]
  2. ACETAMINOPHEN [Concomitant]
  3. AVONEX [Suspect]
     Indication: MULTIPLE SCLEROSIS
     Route: 030
     Dates: start: 20001012, end: 20040701
  4. AVONEX [Suspect]
     Route: 030
     Dates: start: 20040801, end: 20050401
  5. AVONEX [Suspect]
     Route: 030
     Dates: start: 20050501, end: 20100909
  6. AVONEX [Suspect]
     Route: 030
     Dates: start: 20100901

REACTIONS (9)
  - OBESITY [None]
  - GAIT DISTURBANCE [None]
  - RHEUMATOID ARTHRITIS [None]
  - VOMITING [None]
  - ANXIETY [None]
  - SCIATICA [None]
  - MUSCULAR WEAKNESS [None]
  - DEPRESSION [None]
  - POLYNEUROPATHY [None]
